FAERS Safety Report 7329040-X (Version None)
Quarter: 2011Q1

REPORT INFORMATION
  Report Type: 
  Country: None (occurrence: None)
  Receive Date: 20110303
  Receipt Date: 20110223
  Transmission Date: 20110831
  Serious: Yes (Hospitalization, Other)
  Sender: FDA-Public Use
  Company Number: IN-ROXANE LABORATORIES, INC.-2011-RO-00223RO

PATIENT
  Age: 4 Year
  Sex: Male
  Weight: 15 kg

DRUGS (2)
  1. ONDANSETRON [Suspect]
     Indication: VOMITING
     Route: 042
  2. ONDANSETRON [Suspect]
     Indication: DIARRHOEA

REACTIONS (3)
  - DYSTONIA [None]
  - HYPOGLYCAEMIA [None]
  - GRAND MAL CONVULSION [None]
